FAERS Safety Report 25237656 (Version 1)
Quarter: 2025Q2

REPORT INFORMATION
  Report Type: Spontaneous
  Country: US (occurrence: US)
  Receive Date: 20250425
  Receipt Date: 20250425
  Transmission Date: 20250717
  Serious: No
  Sender: UROGEN PHARMA
  Company Number: US-UROGEN PHARMA LTD.-2025-UGN-000047

PATIENT

DRUGS (9)
  1. JELMYTO [Suspect]
     Active Substance: MITOMYCIN
     Indication: Transitional cell carcinoma
     Route: 065
     Dates: start: 20250217, end: 20250217
  2. JELMYTO [Suspect]
     Active Substance: MITOMYCIN
     Route: 065
     Dates: start: 20250224, end: 20250224
  3. JELMYTO [Suspect]
     Active Substance: MITOMYCIN
     Route: 065
     Dates: start: 20250303, end: 20250303
  4. JELMYTO [Suspect]
     Active Substance: MITOMYCIN
     Route: 065
     Dates: start: 20250310, end: 20250310
  5. JELMYTO [Suspect]
     Active Substance: MITOMYCIN
     Route: 065
     Dates: start: 20250317, end: 20250317
  6. JELMYTO [Suspect]
     Active Substance: MITOMYCIN
     Route: 065
     Dates: start: 20250331, end: 20250331
  7. EZETIMIBE [Concomitant]
     Active Substance: EZETIMIBE
     Indication: Blood cholesterol
     Route: 065
  8. PITAVASTATIN [Concomitant]
     Active Substance: PITAVASTATIN
     Indication: Blood cholesterol
     Route: 065
  9. AMLODIPINE BESYLATE [Concomitant]
     Active Substance: AMLODIPINE BESYLATE
     Indication: Blood pressure measurement
     Route: 065

REACTIONS (2)
  - Abdominal pain upper [Not Recovered/Not Resolved]
  - Off label use [Unknown]

NARRATIVE: CASE EVENT DATE: 20250320
